FAERS Safety Report 5960954-9 (Version None)
Quarter: 2008Q4

REPORT INFORMATION
  Report Type: 
  Country: None (occurrence: None)
  Receive Date: 20081119
  Receipt Date: 20081106
  Transmission Date: 20090506
  Serious: Yes (Hospitalization)
  Sender: FDA-Public Use
  Company Number: SPV1-2008-01998

PATIENT
  Age: 8 Year
  Sex: Male

DRUGS (1)
  1. DAYTRANA [Suspect]
     Dosage: 1XDAY,QD; TRANSDERMAL
     Route: 062

REACTIONS (5)
  - ADDISON'S DISEASE [None]
  - BLOOD SODIUM DECREASED [None]
  - DIARRHOEA [None]
  - NAUSEA [None]
  - VOMITING [None]
